FAERS Safety Report 6715956-1 (Version None)
Quarter: 2010Q2

REPORT INFORMATION
  Report Type: 
  Country: None (occurrence: None)
  Receive Date: 20100507
  Receipt Date: 20100427
  Transmission Date: 20101027
  Serious: Yes (Hospitalization)
  Sender: FDA-Public Use
  Company Number: US-ABBOTT-09P-163-0572707-00

PATIENT
  Sex: Male
  Weight: 88.53 kg

DRUGS (3)
  1. HUMIRA [Suspect]
     Indication: CROHN'S DISEASE
     Route: 058
     Dates: start: 20080325, end: 20090501
  2. VICODIN [Suspect]
     Indication: PROCEDURAL PAIN
     Route: 048
     Dates: start: 20090527
  3. PENTASA [Concomitant]
     Indication: DRUG USE FOR UNKNOWN INDICATION

REACTIONS (20)
  - ABDOMINAL PAIN [None]
  - ARTHRALGIA [None]
  - CROHN'S DISEASE [None]
  - FALL [None]
  - GASTRIC ULCER [None]
  - ILEITIS [None]
  - INTESTINAL OBSTRUCTION [None]
  - JOINT STIFFNESS [None]
  - MUSCULAR WEAKNESS [None]
  - MUSCULOSKELETAL STIFFNESS [None]
  - NAUSEA [None]
  - OESOPHAGEAL ULCER [None]
  - PYREXIA [None]
  - RASH MACULAR [None]
  - SCAB [None]
  - SKIN WRINKLING [None]
  - SMALL INTESTINAL STENOSIS [None]
  - TREMOR [None]
  - UNEVALUABLE EVENT [None]
  - VOMITING [None]
